FAERS Safety Report 4381805-2 (Version None)
Quarter: 2004Q2

REPORT INFORMATION
  Report Type: 
  Country: None (occurrence: None)
  Receive Date: 20040615
  Receipt Date: 20040602
  Transmission Date: 20050107
  Serious: Yes (Death)
  Sender: FDA-Public Use
  Company Number: GB-JNJFOC-20040601642

PATIENT
  Age: 77 Year
  Sex: Male
  Weight: 70 kg

DRUGS (8)
  1. ABCIXIMAB - BLINDED (ABCIXIMAB) INJECTION [Suspect]
     Indication: ACUTE MYOCARDIAL INFARCTION
     Dosage: INTRAVENOUS
     Route: 042
     Dates: start: 20040524
  2. RETEPLASE (RETEPLASE) LYOPHILIZED POWDER [Suspect]
     Indication: ACUTE MYOCARDIAL INFARCTION
     Dosage: INTRAVENOUS
     Route: 042
     Dates: start: 20040524
  3. PLACEBO (PLACEBO) INJECTION [Suspect]
     Dosage: INTRAVENOUS
     Route: 042
     Dates: start: 20040524
  4. PARVOLEX (ACETYLCYSTEINE) [Concomitant]
  5. ENOXAPRIN (HEPARIN-FRACTION, SODIUM SALT) [Concomitant]
  6. COMBIVENT [Concomitant]
  7. PREDNISOLONE [Concomitant]
  8. FUROSEMIDE [Concomitant]

REACTIONS (19)
  - ACIDOSIS [None]
  - BLOOD PRESSURE DECREASED [None]
  - CARDIAC OUTPUT DECREASED [None]
  - COLD SWEAT [None]
  - CORONARY ARTERY ATHEROSCLEROSIS [None]
  - CORONARY ARTERY OCCLUSION [None]
  - CYANOSIS [None]
  - DRUG INTERACTION [None]
  - DYSPEPSIA [None]
  - ELECTROMECHANICAL DISSOCIATION [None]
  - HYPERHIDROSIS [None]
  - MYOCARDIAL INFARCTION [None]
  - PALLOR [None]
  - PERIPHERAL CIRCULATORY FAILURE [None]
  - RESPIRATORY ARREST [None]
  - SINUS TACHYCARDIA [None]
  - STENT OCCLUSION [None]
  - VENTRICULAR DYSFUNCTION [None]
  - WHEEZING [None]
